FAERS Safety Report 8881173 (Version 1)
Quarter: 2012Q4

REPORT INFORMATION
  Report Type: 
  Country: AR (occurrence: AR)
  Receive Date: 20121031
  Receipt Date: 20121031
  Transmission Date: 20130627
  Serious: Yes (Death)
  Sender: FDA-Public Use
  Company Number: PHHY2012AR098498

PATIENT
  Age: 81 Year
  Sex: Male

DRUGS (2)
  1. EXELON PATCH [Suspect]
     Dosage: 4.6 mg daily
     Route: 062
  2. TRILEPTAL [Suspect]
     Dosage: 600 mg UNK

REACTIONS (1)
  - Cardio-respiratory arrest [Fatal]
